FAERS Safety Report 8956875 (Version 4)
Quarter: 2013Q1

REPORT INFORMATION
  Report Type: Report from Study
  Country: US (occurrence: US)
  Receive Date: 20121210
  Receipt Date: 20130219
  Transmission Date: 20140127
  Serious: Yes (Hospitalization)
  Sender: FDA-Public Use
  Company Number: US-ACTELION-A-NJ2012-59281

PATIENT
  Age: 83 Year
  Sex: Female

DRUGS (4)
  1. TRACLEER [Suspect]
     Indication: PULMONARY ARTERIAL HYPERTENSION
     Dosage: UNK
     Route: 048
  2. TYVASO [Suspect]
  3. REVATIO [Concomitant]
  4. COUMADIN [Concomitant]

REACTIONS (15)
  - Gout [Unknown]
  - Blood pressure decreased [Unknown]
  - Syncope [Unknown]
  - Fluid retention [Unknown]
  - Pain in extremity [Unknown]
  - Cough [Unknown]
  - Increased upper airway secretion [Unknown]
  - Vomiting [Unknown]
  - Nasal congestion [Unknown]
  - Cyanosis [Unknown]
  - Oedema [Unknown]
  - Oedema peripheral [Unknown]
  - Loss of consciousness [Unknown]
  - Presyncope [Unknown]
  - Dizziness [Unknown]
